FAERS Safety Report 19421438 (Version 2)
Quarter: 2021Q3

REPORT INFORMATION
  Report Type: Spontaneous
  Country: GB (occurrence: GB)
  Receive Date: 20210616
  Receipt Date: 20210722
  Transmission Date: 20211014
  Serious: Yes (Other)
  Sender: FDA-Public Use
  Company Number: GB-TEVA-2021-GB-1921730

PATIENT
  Age: 79 Year
  Sex: Female
  Weight: 68.94 kg

DRUGS (4)
  1. TEVA UK LEVOTHYROXINE [Suspect]
     Active Substance: LEVOTHYROXINE
     Indication: HYPERTHYROIDISM
     Dosage: 75 ML
     Route: 048
     Dates: start: 20190305, end: 20200605
  2. ACCORD?UK RAMIPRIL [Concomitant]
  3. AMLODIPIN [Concomitant]
     Active Substance: AMLODIPINE BESYLATE
  4. CLOPIDOGREL [Concomitant]
     Active Substance: CLOPIDOGREL BISULFATE

REACTIONS (6)
  - Tremor [Recovered/Resolved]
  - Irritable bowel syndrome [Unknown]
  - Agitation [Recovered/Resolved]
  - Product substitution issue [Unknown]
  - Anger [Unknown]
  - Asthenia [Unknown]

NARRATIVE: CASE EVENT DATE: 202004
